FAERS Safety Report 6019705-4 (Version None)
Quarter: 2008Q4

REPORT INFORMATION
  Report Type: 
  Country: None (occurrence: None)
  Receive Date: 20081224
  Receipt Date: 20081218
  Transmission Date: 20090506
  Serious: Yes (Hospitalization)
  Sender: FDA-Public Use
  Company Number: IN-WATSON-2008-07441

PATIENT
  Age: 4 Year
  Sex: Male

DRUGS (2)
  1. FIORICET [Suspect]
     Indication: VIRAL INFECTION
     Dosage: 15 MG/KG FOR TWO DOSES
     Route: 048
  2. FIORICET [Suspect]
     Dosage: 20 MG/KG, BID
     Route: 048

REACTIONS (1)
  - ANGIOEDEMA [None]
